FAERS Safety Report 19449201 (Version 2)
Quarter: 2021Q3

REPORT INFORMATION
  Report Type: Spontaneous
  Country: US (occurrence: US)
  Receive Date: 20210622
  Receipt Date: 20210910
  Transmission Date: 20211014
  Serious: No
  Sender: FDA-Public Use
  Company Number: US-ITALFARMACO SPA-2112982

PATIENT
  Age: 84 Year
  Sex: Male

DRUGS (5)
  1. LOSARTAN. [Concomitant]
     Active Substance: LOSARTAN
  2. RADICAVA [Concomitant]
     Active Substance: EDARAVONE
  3. TIGLUTIK [Suspect]
     Active Substance: RILUZOLE
     Indication: AMYOTROPHIC LATERAL SCLEROSIS
     Route: 048
     Dates: start: 20210301, end: 20210429
  4. OZEMPIC [Concomitant]
     Active Substance: SEMAGLUTIDE
  5. CARVEDILOL. [Concomitant]
     Active Substance: CARVEDILOL

REACTIONS (2)
  - Pulmonary function test decreased [None]
  - Asthenia [None]

NARRATIVE: CASE EVENT DATE: 20210429
